FAERS Safety Report 5361822-6 (Version None)
Quarter: 2007Q2

REPORT INFORMATION
  Report Type: 
  Country: None (occurrence: None)
  Receive Date: 20070530
  Receipt Date: 20070320
  Transmission Date: 20071010
  Serious: No
  Sender: FDA-Public Use
  Company Number: 2006PV027342

PATIENT
  Age: 44 Year
  Sex: Female
  Weight: 120.2032 kg

DRUGS (2)
  1. BYETTA [Suspect]
     Indication: DIABETES MELLITUS NON-INSULIN-DEPENDENT
     Dosage: 10 MCG; BID; SC,
     Route: 058
     Dates: start: 20070101
  2. BYETTA [Suspect]
     Dosage: 5 MCG;BID;SC
     Route: 058
     Dates: start: 20061001, end: 20070101

REACTIONS (8)
  - ARTHRALGIA [None]
  - ARTHRITIS [None]
  - BRONCHITIS [None]
  - COUGH [None]
  - LYMPHADENOPATHY [None]
  - NASOPHARYNGITIS [None]
  - PHARYNGOLARYNGEAL PAIN [None]
  - RED BLOOD CELL SEDIMENTATION RATE INCREASED [None]
